FAERS Safety Report 13160579 (Version 1)
Quarter: 2017Q1

REPORT INFORMATION
  Report Type: Spontaneous
  Country: US (occurrence: US)
  Receive Date: 20170129
  Receipt Date: 20170129
  Transmission Date: 20170428
  Serious: No
  Sender: FDA-Public Use
  Company Number: US-009507513-1701USA004578

PATIENT
  Age: 64 Year
  Sex: Male

DRUGS (1)
  1. ZEPATIER [Suspect]
     Active Substance: ELBASVIR\GRAZOPREVIR
     Indication: CHRONIC HEPATITIS C
     Dosage: 100/50 MG; 1 TABLET DAILY FOR 12 WEEKS
     Route: 048
     Dates: start: 201701

REACTIONS (1)
  - Product difficult to swallow [Unknown]

NARRATIVE: CASE EVENT DATE: 201701
